FAERS Safety Report 6213504-6 (Version None)
Quarter: 2009Q2

REPORT INFORMATION
  Report Type: 
  Country: None (occurrence: None)
  Receive Date: 20090601
  Receipt Date: 20090526
  Transmission Date: 20091009
  Serious: Yes (Life-Threatening, Hospitalization)
  Sender: FDA-Public Use
  Company Number: ADR2072009 (BFARM REF NO: RE-BFARM-

PATIENT
  Age: 69 Year
  Sex: Female

DRUGS (10)
  1. RAMIPRIL [Suspect]
     Indication: HYPERTENSION
     Dosage: ORAL
     Route: 048
     Dates: start: 20000101, end: 20090315
  2. HALOPERIDOL [Concomitant]
  3. ZOLPIDEM TABLETS [Concomitant]
  4. ANALGIN (METAMIZOLE SODIUM) TABLETS [Concomitant]
  5. CALCIUM TABLETS [Concomitant]
  6. IBUPROFEN TABLETS [Concomitant]
  7. ISCOVER (CLOPIDOGREL) TABLETS [Concomitant]
  8. NEBIVOLOL SANDOZ [Concomitant]
  9. PANTOPRAZOLE SODIUM [Concomitant]
  10. THEOPHYLLINE DR CAPSULES [Concomitant]

REACTIONS (3)
  - DRUG INTERACTION [None]
  - HYPONATRAEMIA [None]
  - RHABDOMYOLYSIS [None]
